FAERS Safety Report 8054920-X (Version None)
Quarter: 2012Q1

REPORT INFORMATION
  Report Type: 
  Country: None (occurrence: None)
  Receive Date: 20120119
  Receipt Date: 20120111
  Transmission Date: 20120608
  Serious: Yes (Other)
  Sender: FDA-Public Use
  Company Number: US-US-EMD SERONO, INC.-7096895

PATIENT
  Sex: Female
  Weight: 66 kg

DRUGS (3)
  1. REBIF [Suspect]
     Indication: RELAPSING-REMITTING MULTIPLE SCLEROSIS
     Route: 058
     Dates: start: 20081113
  2. REBIF [Suspect]
     Route: 058
     Dates: start: 20110101
  3. BACLOFEN [Concomitant]
     Dosage: .5

REACTIONS (5)
  - PAIN [None]
  - CHILLS [None]
  - MUSCLE SPASMS [None]
  - PLATELET COUNT DECREASED [None]
  - NUCLEAR MAGNETIC RESONANCE IMAGING ABNORMAL [None]
